FAERS Safety Report 9913366 (Version 1)
Quarter: 2014Q1

REPORT INFORMATION
  Report Type: Spontaneous
  Country: US (occurrence: US)
  Receive Date: 20140220
  Receipt Date: 20140220
  Transmission Date: 20141002
  Serious: No
  Sender: FDA-Public Use
  Company Number: US-009507513-1402USA003074

PATIENT
  Sex: Male

DRUGS (15)
  1. HYZAAR [Suspect]
     Indication: HYPERTENSION
     Dosage: 1 DF, QD
     Route: 048
     Dates: end: 201311
  2. VICODIN [Concomitant]
  3. PROTONIX [Concomitant]
  4. EFFIENT [Concomitant]
  5. LIPITOR [Concomitant]
  6. VALIUM [Concomitant]
     Dosage: UNK, QM
  7. METAMUCIL [Concomitant]
  8. OMEGA-3 [Concomitant]
  9. CENTRUM SILVER MEN 50 PLUS [Concomitant]
  10. CHONDROITIN SULFATE SODIUM (+) GLUCOSAMINE SULFATE [Concomitant]
  11. BIOTIN [Concomitant]
  12. ASPIRIN [Concomitant]
  13. COSAMIN DS [Concomitant]
  14. CALCIUM (UNSPECIFIED) [Concomitant]
  15. HYDROCHLOROTHIAZIDE (+) LOSARTAN POTASSIUM [Concomitant]
     Indication: HYPERTENSION
     Dosage: UNK
     Dates: start: 201311, end: 20140129

REACTIONS (1)
  - Cough [Not Recovered/Not Resolved]
